FAERS Safety Report 24117938 (Version 4)
Quarter: 2024Q3

REPORT INFORMATION
  Report Type: Report from Study
  Country: CH (occurrence: CH)
  Receive Date: 20240722
  Receipt Date: 20240810
  Transmission Date: 20241017
  Serious: Yes (Hospitalization)
  Sender: ABBVIE
  Company Number: CH-ABBVIE-5846227

PATIENT
  Sex: Male

DRUGS (5)
  1. CARBIDOPA\LEVODOPA [Suspect]
     Active Substance: CARBIDOPA\LEVODOPA
     Indication: Parkinson^s disease
     Dosage: MD: 6.0 ML, CRD: 3.2 ML/H, ED: 3.5 ML, CRN: 3.0 ML/H?FREQUENCY TEXT: 24H THERAPY
     Route: 050
     Dates: start: 20240204, end: 20240402
  2. CARBIDOPA\LEVODOPA [Suspect]
     Active Substance: CARBIDOPA\LEVODOPA
     Dosage: MD: 3.0 ML, CRD: 3.2 ML/H, ED: 3.5 ML, CRN: 3.0 ML/H?FREQUENCY TEXT: 24H THERAPY
     Route: 050
     Dates: start: 20240615
  3. CARBIDOPA\LEVODOPA [Suspect]
     Active Substance: CARBIDOPA\LEVODOPA
     Dosage: FREQUENCY TEXT: 24H THERAPY
     Route: 050
     Dates: start: 20230328
  4. CARBIDOPA\LEVODOPA [Suspect]
     Active Substance: CARBIDOPA\LEVODOPA
     Dosage: MD: 4.0 ML, CRD: 3.2 ML/H, ED: 3.5 ML, CRN: 3.0 ML/H?FREQUENCY TEXT: 24H THERAPY
     Route: 050
     Dates: start: 20240502, end: 20240615
  5. CARBIDOPA\LEVODOPA [Suspect]
     Active Substance: CARBIDOPA\LEVODOPA
     Dosage: MD: 3.0 ML, CRD: 3.2 ML/H, ED: 3.5 ML, CRN: 3.0 ML/H?FREQUENCY TEXT: 24H THERAPY
     Route: 050
     Dates: start: 20240402, end: 20240502

REACTIONS (7)
  - Cataract [Unknown]
  - Incontinence [Not Recovered/Not Resolved]
  - Dementia [Not Recovered/Not Resolved]
  - Off label use [Recovered/Resolved]
  - Device dislocation [Not Recovered/Not Resolved]
  - Unevaluable event [Not Recovered/Not Resolved]
  - Device connection issue [Unknown]

NARRATIVE: CASE EVENT DATE: 20240101
